FAERS Safety Report 19581662 (Version 1)
Quarter: 2021Q3

REPORT INFORMATION
  Report Type: Spontaneous
  Country: US (occurrence: US)
  Receive Date: 20210720
  Receipt Date: 20210720
  Transmission Date: 20211014
  Serious: Yes (Other)
  Sender: FDA-Public Use
  Company Number: None

PATIENT
  Age: 49 Year
  Sex: Female
  Weight: 71.1 kg

DRUGS (4)
  1. LEVOTHYROXINE. [Concomitant]
     Active Substance: LEVOTHYROXINE
  2. SIMVISTATIN [Concomitant]
     Active Substance: SIMVASTATIN
  3. CYMBALTA [Concomitant]
     Active Substance: DULOXETINE HYDROCHLORIDE
  4. NEUTROGENA BEACH DEFENSE SPF 70 [Suspect]
     Active Substance: AVOBENZONE\HOMOSALATE\OCTISALATE\OCTOCRYLENE
     Indication: PROPHYLAXIS AGAINST SOLAR RADIATION
     Dosage: ?          OTHER STRENGTH:SPF;QUANTITY:1 SPRAY(S);OTHER FREQUENCY:EVERY 80 MINUTES;?
     Route: 061
     Dates: start: 20210613, end: 20210618

REACTIONS (1)
  - Burns second degree [None]

NARRATIVE: CASE EVENT DATE: 20210613
